FAERS Safety Report 5192516-8 (Version None)
Quarter: 2006Q4

REPORT INFORMATION
  Report Type: 
  Country: None (occurrence: None)
  Receive Date: 20061220
  Receipt Date: 20061205
  Transmission Date: 20070319
  Serious: Yes (Hospitalization)
  Sender: FDA-Public Use
  Company Number: MEDI-0004753

PATIENT
  Age: 3 Month
  Sex: 0

DRUGS (3)
  1. SYNAGIS [Suspect]
     Indication: ANTIVIRAL PROPHYLAXIS
     Dosage: 40 MG, INTRAMUSCULAR; 25 MG, INTRAMUSCULAR; 36 MG, INTRAMUSCULAR
     Route: 030
     Dates: start: 20060116, end: 20060313
  2. SYNAGIS [Suspect]
     Indication: ANTIVIRAL PROPHYLAXIS
     Dosage: 40 MG, INTRAMUSCULAR; 25 MG, INTRAMUSCULAR; 36 MG, INTRAMUSCULAR
     Route: 030
     Dates: start: 20060116
  3. SYNAGIS [Suspect]
     Indication: ANTIVIRAL PROPHYLAXIS
     Dosage: 40 MG, INTRAMUSCULAR; 25 MG, INTRAMUSCULAR; 36 MG, INTRAMUSCULAR
     Route: 030
     Dates: start: 20060213

REACTIONS (1)
  - BRONCHIOLITIS [None]
